FAERS Safety Report 9255511 (Version 2)
Quarter: 2013Q3

REPORT INFORMATION
  Report Type: Spontaneous
  Country: DE (occurrence: DE)
  Receive Date: 20130425
  Receipt Date: 20130716
  Transmission Date: 20140515
  Serious: Yes (Death, Hospitalization)
  Sender: FDA-Public Use
  Company Number: DE-ASTRAZENECA-2013SE26335

PATIENT
  Age: 304 Day
  Sex: Female

DRUGS (12)
  1. SYNAGIS [Suspect]
     Indication: ANTIVIRAL PROPHYLAXIS
     Route: 030
     Dates: start: 20130208, end: 20130208
  2. SYNAGIS [Suspect]
     Indication: HEART DISEASE CONGENITAL
     Route: 030
     Dates: start: 20130208, end: 20130208
  3. SYNAGIS [Suspect]
     Indication: ANTIVIRAL PROPHYLAXIS
     Route: 030
     Dates: start: 201303, end: 201303
  4. SYNAGIS [Suspect]
     Indication: HEART DISEASE CONGENITAL
     Route: 030
     Dates: start: 201303, end: 201303
  5. MONTELUKAST [Concomitant]
     Indication: BRONCHITIS CHRONIC
  6. MONTELUKAST [Concomitant]
     Indication: BRONCHOPULMONARY DYSPLASIA
  7. ESIDRIX [Concomitant]
     Indication: BRONCHOPULMONARY DYSPLASIA
  8. SPIRONOLACTONE [Concomitant]
     Indication: BRONCHOPULMONARY DYSPLASIA
  9. JUNIK [Concomitant]
     Indication: BRONCHOPULMONARY DYSPLASIA
  10. JUNIK [Concomitant]
     Indication: BRONCHITIS
  11. IRON [Concomitant]
     Indication: ANAEMIA
  12. AMLODIPINE [Concomitant]
     Indication: PULMONARY HYPERTENSION

REACTIONS (3)
  - Pneumonia respiratory syncytial viral [Fatal]
  - Respiratory failure [Fatal]
  - Bronchopulmonary dysplasia [Fatal]
